FAERS Safety Report 4578650-1 (Version None)
Quarter: 2005Q1

REPORT INFORMATION
  Report Type: 
  Country: None (occurrence: None)
  Receive Date: 20050209
  Receipt Date: 20050209
  Transmission Date: 20050727
  Serious: Yes (Hospitalization)
  Sender: FDA-Public Use
  Company Number: None

PATIENT
  Age: 54 Year
  Sex: Female
  Weight: 68.0396 kg

DRUGS (4)
  1. ENTEX PSE    400/120    ANDRX [Suspect]
     Dosage: ONE   TWICE DAILY   ORAL
     Route: 048
     Dates: start: 20050120, end: 20050121
  2. AUGMENTIN '125' [Concomitant]
  3. PANCOF SYRUP [Concomitant]
  4. PREMARIN [Concomitant]

REACTIONS (2)
  - BLOOD PRESSURE INCREASED [None]
  - PALPITATIONS [None]
